FAERS Safety Report 8161370-4 (Version None)
Quarter: 2012Q1

REPORT INFORMATION
  Report Type: 
  Country: None (occurrence: None)
  Receive Date: 20120224
  Receipt Date: 20120217
  Transmission Date: 20120608
  Serious: Yes (Other)
  Sender: FDA-Public Use
  Company Number: JP-JNJFOC-20120210038

PATIENT
  Age: 53 Year
  Sex: Female

DRUGS (4)
  1. TRAMADOL HYDROCHLORIDE AND ACETAMINOPHEN [Suspect]
     Indication: PAIN
     Dosage: 2 DF X 1 PER 1 DAY
     Route: 048
     Dates: start: 20120123
  2. PRIMPERAN TAB [Concomitant]
     Indication: PRODUCT USED FOR UNKNOWN INDICATION
     Dosage: ONCE A DAY
     Route: 048
     Dates: start: 20120123
  3. AN UNKNOWN MEDICATION [Concomitant]
     Route: 065
  4. UNSPECIFIED TRANQUILIZERS [Concomitant]
     Route: 065

REACTIONS (1)
  - RHABDOMYOLYSIS [None]
